FAERS Safety Report 4465748-1 (Version None)
Quarter: 2004Q3

REPORT INFORMATION
  Report Type: 
  Country: None (occurrence: None)
  Receive Date: 20040929
  Receipt Date: 20040929
  Transmission Date: 20050211
  Serious: Yes (Other)
  Sender: FDA-Public Use
  Company Number: None

PATIENT
  Age: 31 Year
  Sex: Female
  Weight: 62.5964 kg

DRUGS (3)
  1. CELEXA [Suspect]
     Indication: DEPRESSION
     Dosage: 20 MG QD ORAL
     Route: 048
     Dates: start: 20010101, end: 20040815
  2. NUVARING [Concomitant]
  3. CELEXA [Suspect]
     Dosage: 10 MG QD ORAL
     Route: 048
     Dates: start: 20040815, end: 20040919

REACTIONS (3)
  - DIARRHOEA [None]
  - NAUSEA [None]
  - PARAESTHESIA [None]
